FAERS Safety Report 15005248 (Version 1)
Quarter: 2018Q2

REPORT INFORMATION
  Report Type: Spontaneous
  Country: US (occurrence: US)
  Receive Date: 20180613
  Receipt Date: 20180613
  Transmission Date: 20180711
  Serious: No
  Sender: FDA-Public Use
  Company Number: US-TARO-2017TAR01100

PATIENT
  Sex: Female
  Weight: 71.66 kg

DRUGS (4)
  1. NORTRIPTYLINE HCL CAPSULES 10 MG [Suspect]
     Active Substance: NORTRIPTYLINE HYDROCHLORIDE
     Indication: NEURALGIA
     Dosage: 10 MG, 2X/DAY IN THE MORNING AND AT NIGHT
     Route: 048
     Dates: start: 201707, end: 2017
  2. NORTRIPTYLINE HCL CAPSULES 10 MG [Suspect]
     Active Substance: NORTRIPTYLINE HYDROCHLORIDE
     Indication: NERVE INJURY
     Dosage: 10 MG, 2X/DAY IN THE MORNING AND AT NIGHT
     Route: 048
     Dates: start: 2017, end: 2017
  3. UNSPECIFIED CHOLESTEROL MEDICATION [Concomitant]
     Active Substance: UNSPECIFIED INGREDIENT
  4. UNSPECIFIED BLOOD PRESSURE MEDICATION [Concomitant]
     Active Substance: UNSPECIFIED INGREDIENT

REACTIONS (5)
  - Product substitution issue [Recovered/Resolved]
  - Drug ineffective for unapproved indication [Recovered/Resolved]
  - Neuralgia [Not Recovered/Not Resolved]
  - Muscle tightness [Not Recovered/Not Resolved]
  - Headache [Not Recovered/Not Resolved]

NARRATIVE: CASE EVENT DATE: 2017
